FAERS Safety Report 18600023 (Version 1)
Quarter: 2020Q4

REPORT INFORMATION
  Report Type: Spontaneous
  Country: CN (occurrence: CN)
  Receive Date: 20201210
  Receipt Date: 20201210
  Transmission Date: 20210114
  Serious: Yes (Other)
  Sender: FDA-Public Use
  Company Number: CN-PFIZER INC-2020481825

PATIENT
  Age: 51 Year
  Sex: Female
  Weight: 59 kg

DRUGS (3)
  1. LIPITOR [Suspect]
     Active Substance: ATORVASTATIN CALCIUM
     Indication: ARTERIOSCLEROSIS
  2. LIPITOR [Suspect]
     Active Substance: ATORVASTATIN CALCIUM
     Indication: LIPIDS ABNORMAL
     Dosage: 20 MG, 1X/DAY
     Route: 048
     Dates: start: 20201118, end: 20201118
  3. BRILINTA [Concomitant]
     Active Substance: TICAGRELOR
     Indication: PLATELET DISORDER
     Dosage: 90 MG, 2X/DAY
     Route: 048
     Dates: start: 20201118, end: 20201123

REACTIONS (3)
  - Discomfort [Recovered/Resolved]
  - Myalgia [Recovered/Resolved]
  - Bone pain [Recovered/Resolved]

NARRATIVE: CASE EVENT DATE: 20201118
